FAERS Safety Report 8809072 (Version 1)
Quarter: 2012Q4

REPORT INFORMATION
  Report Type: Spontaneous
  Country: US (occurrence: None)
  Receive Date: 20120920
  Receipt Date: 20120920
  Transmission Date: 20130627
  Serious: Yes (Other)
  Sender: FDA-Public Use
  Company Number: 2012033266

PATIENT
  Age: 55 Year
  Sex: Female
  Weight: 88.45 kg

DRUGS (4)
  1. HIZENTRA [Suspect]
     Indication: IMMUNODEFICIENCY COMMON VARIABLE
     Route: 058
     Dates: start: 20120713, end: 20120713
  2. UNSPECIFIED [Concomitant]
  3. VITAMIN B12 [Concomitant]
  4. CALCIUM + VITAMIN D [Concomitant]

REACTIONS (4)
  - Feeling abnormal [None]
  - Malaise [None]
  - Depressed mood [None]
  - Depression [None]
